FAERS Safety Report 5739381-5 (Version None)
Quarter: 2008Q2

REPORT INFORMATION
  Report Type: 
  Country: None (occurrence: None)
  Receive Date: 20080515
  Receipt Date: 20080505
  Transmission Date: 20081010
  Serious: Yes (Other)
  Sender: FDA-Public Use
  Company Number: US-ELI_LILLY_AND_COMPANY-US200803005907

PATIENT
  Sex: Female
  Weight: 53.515 kg

DRUGS (17)
  1. EVISTA [Suspect]
     Dosage: UNK, UNK
     Dates: end: 20071001
  2. EVISTA [Suspect]
     Dates: start: 20080301
  3. FORTEO [Suspect]
     Indication: OSTEOPOROSIS
     Dosage: 20 UG, DAILY (1/D)
     Dates: start: 20071001
  4. FORTEO [Suspect]
     Dosage: 20 UG, DAILY (1/D)
  5. VITAMINS [Concomitant]
  6. VITAMIN E [Concomitant]
  7. VITAMIN A [Concomitant]
  8. VITAMIN B COMPLEX CAP [Concomitant]
  9. CALCIUM [Concomitant]
  10. MAGNESIUM [Concomitant]
  11. VITAMIN D [Concomitant]
  12. FISH OIL [Concomitant]
  13. BREWERS YEAST [Concomitant]
  14. LECITHIN [Concomitant]
  15. MULTI-VITAMIN [Concomitant]
  16. GLUCOSAMINE W/CHONDROITIN [Concomitant]
  17. BONIVA [Concomitant]
     Dates: start: 20010101

REACTIONS (9)
  - ANXIETY [None]
  - ARTHRITIS [None]
  - BREAST CANCER IN SITU [None]
  - CATARACT [None]
  - DIZZINESS [None]
  - DYSPEPSIA [None]
  - METASTASES TO LYMPH NODES [None]
  - MUSCULOSKELETAL PAIN [None]
  - ROTATOR CUFF REPAIR [None]
